FAERS Safety Report 8376680-5 (Version None)
Quarter: 2012Q2

REPORT INFORMATION
  Report Type: 
  Country: None (occurrence: None)
  Receive Date: 20120518
  Receipt Date: 20120508
  Transmission Date: 20120825
  Serious: Yes (Hospitalization)
  Sender: FDA-Public Use
  Company Number: DKLU1080235

PATIENT
  Age: 40 Year
  Sex: Male

DRUGS (1)
  1. ONFI [Suspect]
     Indication: EPILEPSY
     Dosage: 20 MG MILLIGRAM(S), 2 IN 1 D, ORAL
     Route: 048
     Dates: start: 20120404, end: 20120101

REACTIONS (2)
  - OEDEMA PERIPHERAL [None]
  - CONVULSION [None]
